FAERS Safety Report 16393382 (Version 2)
Quarter: 2020Q4

REPORT INFORMATION
  Report Type: Spontaneous
  Country: US (occurrence: US)
  Receive Date: 20190605
  Receipt Date: 20201106
  Transmission Date: 20210113
  Serious: Yes (Other)
  Sender: FDA-Public Use
  Company Number: US-PFIZER INC-2019238659

PATIENT
  Age: 41 Year
  Sex: Male
  Weight: 99.79 kg

DRUGS (1)
  1. VENLAFAXINE HCL [Suspect]
     Active Substance: VENLAFAXINE HYDROCHLORIDE
     Dosage: UNK

REACTIONS (12)
  - Depression [Unknown]
  - Mood altered [Unknown]
  - Illness [Unknown]
  - Apathy [Unknown]
  - Anger [Unknown]
  - Diarrhoea [Unknown]
  - Drug intolerance [Unknown]
  - Suicidal ideation [Unknown]
  - Anxiety [Unknown]
  - Headache [Unknown]
  - Crying [Unknown]
  - Drug withdrawal syndrome [Unknown]

NARRATIVE: CASE EVENT DATE: 2018
